FAERS Safety Report 7623491-1 (Version None)
Quarter: 2011Q3

REPORT INFORMATION
  Report Type: 
  Country: None (occurrence: None)
  Receive Date: 20110720
  Receipt Date: 20110711
  Transmission Date: 20111222
  Serious: Yes (Hospitalization)
  Sender: FDA-Public Use
  Company Number: PHHY2011SE63256

PATIENT
  Sex: Female

DRUGS (11)
  1. RIFAMPICIN [Suspect]
     Indication: POSTOPERATIVE WOUND INFECTION
     Dosage: 600 MG, UNK
     Route: 048
     Dates: start: 20110301
  2. FUROSEMIDE [Concomitant]
  3. CIPROFLOXACIN [Concomitant]
  4. SIMVASTATIN [Concomitant]
  5. CLEMASTINE FUMARATE [Concomitant]
  6. DIGOXIN [Concomitant]
  7. METOPROLOL TARTRATE [Concomitant]
  8. INOLAXOL [Concomitant]
  9. ACETAMINOPHEN [Concomitant]
  10. XERODENT [Concomitant]
  11. WARFARIN SODIUM [Interacting]
     Indication: ATRIAL FIBRILLATION
     Dosage: UNK UKN, UNK
     Route: 048
     Dates: end: 20110421

REACTIONS (6)
  - VENOUS THROMBOSIS [None]
  - OEDEMA PERIPHERAL [None]
  - PULMONARY INFARCTION [None]
  - INTERNATIONAL NORMALISED RATIO DECREASED [None]
  - DRUG INTERACTION [None]
  - PULMONARY EMBOLISM [None]
